FAERS Safety Report 10181452 (Version 2)
Quarter: 2014Q3

REPORT INFORMATION
  Report Type: Spontaneous
  Country: US (occurrence: US)
  Receive Date: 20140519
  Receipt Date: 20140904
  Transmission Date: 20150326
  Serious: Yes (Other)
  Sender: FDA-Public Use
  Company Number: US-BAYER-2014-070961

PATIENT
  Age: 40 Year
  Sex: Female

DRUGS (1)
  1. SAFYRAL [Suspect]
     Active Substance: DROSPIRENONE\ETHINYL ESTRADIOL\LEVOMEFOLATE CALCIUM
     Indication: MENSTRUAL CYCLE MANAGEMENT
     Dosage: UNK
     Route: 048
     Dates: start: 20140505

REACTIONS (4)
  - Drug ineffective for unapproved indication [None]
  - Extra dose administered [None]
  - Genital haemorrhage [None]
  - Off label use [None]

NARRATIVE: CASE EVENT DATE: 20140505
